FAERS Safety Report 25824167 (Version 1)
Quarter: 2025Q3

REPORT INFORMATION
  Report Type: Spontaneous
  Country: US (occurrence: None)
  Receive Date: 20250919
  Receipt Date: 20250919
  Transmission Date: 20251021
  Serious: No
  Sender: ALKERMES
  Company Number: US-ALKERMES INC.-ALK-2025-002506

PATIENT
  Sex: Female

DRUGS (2)
  1. ARISTADA [Suspect]
     Active Substance: ARIPIPRAZOLE LAUROXIL
     Indication: Product used for unknown indication
  2. ARISTADA [Suspect]
     Active Substance: ARIPIPRAZOLE LAUROXIL

REACTIONS (5)
  - Off label use [Unknown]
  - Therapeutic response shortened [Unknown]
  - Psychotic disorder [Unknown]
  - Procedural pain [Unknown]
  - Metabolic surgery [Unknown]

NARRATIVE: CASE EVENT DATE: 20250101
